FAERS Safety Report 15745978 (Version 1)
Quarter: 2018Q4

REPORT INFORMATION
  Report Type: Spontaneous
  Country: JP (occurrence: JP)
  Receive Date: 20181220
  Receipt Date: 20181220
  Transmission Date: 20190205
  Serious: Yes (Death)
  Sender: FDA-Public Use
  Company Number: JP-BAYER-2018-239512

PATIENT
  Age: 60 Year
  Sex: Male

DRUGS (1)
  1. NEXAVAR [Suspect]
     Active Substance: SORAFENIB
     Indication: HEPATIC CANCER
     Dosage: 400 MG, QD
     Route: 048
     Dates: start: 20180228, end: 20181128

REACTIONS (2)
  - Feeling cold [None]
  - Sudden death [Fatal]

NARRATIVE: CASE EVENT DATE: 20181127
